FAERS Safety Report 11931702 (Version 1)
Quarter: 2016Q1

REPORT INFORMATION
  Report Type: Spontaneous
  Country: US (occurrence: US)
  Receive Date: 20160120
  Receipt Date: 20160120
  Transmission Date: 20160526
  Serious: No
  Sender: FDA-Public Use
  Company Number: US-INCYTE CORPORATION-2015IN006315

PATIENT
  Age: 66 Year
  Sex: Male
  Weight: 87.53 kg

DRUGS (2)
  1. JAKAFI [Suspect]
     Active Substance: RUXOLITINIB
     Dosage: 20 MG IN AM AND 10 MG IN PM
  2. JAKAFI [Suspect]
     Active Substance: RUXOLITINIB
     Indication: MYELOFIBROSIS
     Dosage: 20 MG
     Route: 048
     Dates: start: 20140308

REACTIONS (3)
  - Splenomegaly [Unknown]
  - Decreased appetite [Unknown]
  - Abdominal distension [Unknown]

NARRATIVE: CASE EVENT DATE: 20151128
